FAERS Safety Report 23205897 (Version 1)
Quarter: 2023Q4

REPORT INFORMATION
  Report Type: Spontaneous
  Country: DE (occurrence: DE)
  Receive Date: 20231120
  Receipt Date: 20231120
  Transmission Date: 20240110
  Serious: Yes (Hospitalization, Other)
  Sender: FDA-Public Use
  Company Number: None

PATIENT
  Age: 59 Year
  Sex: Male
  Weight: 90 kg

DRUGS (9)
  1. CEFAZOLIN SODIUM [Suspect]
     Active Substance: CEFAZOLIN SODIUM
     Indication: Antibiotic prophylaxis
     Dosage: 1X
     Route: 042
     Dates: start: 20230201, end: 20230201
  2. DEXAMETHASONE [Concomitant]
     Active Substance: DEXAMETHASONE
     Indication: Prophylaxis of nausea and vomiting
     Dosage: 1X4MG
     Route: 042
     Dates: start: 20230201, end: 20230201
  3. MIDAZOLAM MALEATE [Concomitant]
     Active Substance: MIDAZOLAM MALEATE
     Indication: Premedication
     Route: 048
     Dates: start: 20230201, end: 20230201
  4. JONOSTERIL [CALCIUM ACETATE;MAGNESIUM ACETATE TETRAHYDRATE;POTASSIUM A [Concomitant]
     Indication: Fluid replacement
     Dosage: 1X500ML
     Route: 042
     Dates: start: 20230201, end: 20230201
  5. ONDANSETRON [Concomitant]
     Active Substance: ONDANSETRON
     Indication: Prophylaxis of nausea and vomiting
     Dosage: 1X4MG
     Route: 042
     Dates: start: 20230201, end: 20230201
  6. SINORA [Concomitant]
     Indication: Prophylaxis
     Dosage: DOSAGE DEPENDING ON BLOOD PRESSURE
     Route: 042
     Dates: start: 20230201, end: 20230201
  7. SUFENTANIL CITRATE [Concomitant]
     Active Substance: SUFENTANIL CITRATE
     Indication: Anaesthesia procedure
     Dosage: 1X 20UG
     Route: 042
     Dates: start: 20230201, end: 20230201
  8. SUPRANE [Concomitant]
     Active Substance: DESFLURANE
     Indication: Anaesthesia procedure
     Dosage: DOSAGE AFTER MAC-LIST
     Route: 065
     Dates: start: 20230201, end: 20230201
  9. ALIZAPRIDE HYDROCHLORIDE [Concomitant]
     Active Substance: ALIZAPRIDE HYDROCHLORIDE
     Indication: Prophylaxis of nausea and vomiting
     Dosage: 1X50MG
     Route: 042
     Dates: start: 20230201, end: 20230201

REACTIONS (4)
  - Oxygen saturation decreased [Unknown]
  - Hypotension [Unknown]
  - Bronchospasm [Unknown]
  - Anaphylactic shock [Unknown]

NARRATIVE: CASE EVENT DATE: 20230201
